FAERS Safety Report 4384070-5 (Version None)
Quarter: 2004Q2

REPORT INFORMATION
  Report Type: 
  Country: None (occurrence: None)
  Receive Date: 20040621
  Receipt Date: 20040607
  Transmission Date: 20050107
  Serious: Yes (Other)
  Sender: FDA-Public Use
  Company Number: JP-2004-026447

PATIENT
  Age: 80 Year
  Sex: Male

DRUGS (6)
  1. PROSCOPE 370 (IOPROMIDE) [Suspect]
     Indication: ANGIOGRAM
     Dosage: 24 ML, 1 DOSE INTRA-ARTERIAL
     Route: 013
     Dates: start: 20040525, end: 20040525
  2. PROSCOPE 150 (IOPROMIDE) [Concomitant]
  3. ATROPINE [Concomitant]
  4. HYDROXYZINE HYDROCHLORIDE (HYDROXYZINE HYDROCHORIDE) [Concomitant]
  5. EVIPROSTAT (SODIUM TAUROCHOLATE, EQUISETUM ARVENSE, POPULUS TREMULOIDE [Concomitant]
  6. INSULIN HUMAN (INSULIN HUMAN) [Concomitant]

REACTIONS (1)
  - ANAPHYLACTOID SHOCK [None]
